FAERS Safety Report 7784826-2 (Version None)
Quarter: 2011Q3

REPORT INFORMATION
  Report Type: 
  Country: None (occurrence: None)
  Receive Date: 20110928
  Receipt Date: 20110927
  Transmission Date: 20111222
  Serious: Yes (Hospitalization)
  Sender: FDA-Public Use
  Company Number: NL-ROCHE-776265

PATIENT
  Sex: Male
  Weight: 79.6 kg

DRUGS (6)
  1. SELOKEEN [Concomitant]
  2. OXAZEPAM [Concomitant]
  3. PACLITAXEL [Suspect]
     Indication: NON-SMALL CELL LUNG CANCER
     Dosage: REPORTED START OF LAST COURSE: 02 MAY 2011
     Route: 042
  4. CARBOPLATIN [Suspect]
     Indication: NON-SMALL CELL LUNG CANCER
     Dosage: REPORTED START OF LAST COURSE: 02 MAY 2011
     Route: 042
  5. ASCAL [Concomitant]
  6. AVASTIN [Suspect]
     Indication: NON-SMALL CELL LUNG CANCER
     Dosage: REPORTED START OF LAST COURSE: 02 MAY 2011
     Route: 042

REACTIONS (1)
  - FRONTOTEMPORAL DEMENTIA [None]
